FAERS Safety Report 5775847-X (Version None)
Quarter: 2008Q2

REPORT INFORMATION
  Report Type: 
  Country: None (occurrence: None)
  Receive Date: 20080617
  Receipt Date: 20080602
  Transmission Date: 20081010
  Serious: Yes (Other)
  Sender: FDA-Public Use
  Company Number: FR-GENENTECH-262453

PATIENT
  Sex: Female

DRUGS (8)
  1. HERCEPTIN [Suspect]
     Indication: BREAST CANCER
     Dosage: UNK, Q3W
     Route: 042
     Dates: start: 20070201, end: 20080306
  2. XELODA [Suspect]
     Indication: BREAST CANCER
     Dosage: 1500 MG, BID
     Route: 048
     Dates: start: 20070503
  3. XELODA [Suspect]
     Dosage: 1000 MG, BID
  4. XELODA [Suspect]
     Dosage: 650 MG, BID
     Dates: start: 20071115, end: 20080306
  5. FEMARA [Concomitant]
     Indication: DRUG USE FOR UNKNOWN INDICATION
  6. ARIXTRA [Concomitant]
     Indication: PHLEBITIS
     Dates: end: 20070726
  7. PREVISCAN [Concomitant]
     Indication: PHLEBITIS
     Dosage: UNK, UNK
  8. VIRLIX [Concomitant]
     Indication: ERYTHEMA

REACTIONS (3)
  - PALMAR-PLANTAR ERYTHRODYSAESTHESIA SYNDROME [None]
  - PHLEBITIS [None]
  - VASCULITIS [None]
